FAERS Safety Report 4749712-0 (Version None)
Quarter: 2005Q3

REPORT INFORMATION
  Report Type: 
  Country: None (occurrence: None)
  Receive Date: 20050822
  Receipt Date: 20050428
  Transmission Date: 20060218
  Serious: Yes (Death, Hospitalization)
  Sender: FDA-Public Use
  Company Number: US-MERCK-0505USA00243

PATIENT
  Age: 35 Year
  Sex: Male
  Weight: 82 kg

DRUGS (6)
  1. VIOXX [Suspect]
     Indication: OSTEOARTHRITIS
     Route: 048
     Dates: start: 20000401, end: 20000901
  2. VIOXX [Suspect]
     Route: 048
     Dates: start: 20020301, end: 20020901
  3. VIOXX [Suspect]
     Indication: PAIN IN EXTREMITY
     Route: 048
     Dates: start: 20000401, end: 20000901
  4. VIOXX [Suspect]
     Route: 048
     Dates: start: 20020301, end: 20020901
  5. MEPREDNISONE [Concomitant]
     Route: 065
     Dates: start: 20020701
  6. DIPROLENE [Concomitant]
     Route: 065
     Dates: start: 20020601

REACTIONS (7)
  - ATRIOVENTRICULAR BLOCK [None]
  - CALCULUS URETERIC [None]
  - CYST [None]
  - LOSS OF CONSCIOUSNESS [None]
  - MYOCARDIAL INFARCTION [None]
  - PLANTAR FASCIITIS [None]
  - RENAL COLIC [None]
